FAERS Safety Report 8127956-8 (Version None)
Quarter: 2012Q1

REPORT INFORMATION
  Report Type: 
  Country: None (occurrence: None)
  Receive Date: 20120210
  Receipt Date: 20120206
  Transmission Date: 20120608
  Serious: No
  Sender: FDA-Public Use
  Company Number: US-BIOGENIDEC-2012BI004719

PATIENT
  Age: 40 Year
  Sex: Male

DRUGS (2)
  1. AVONEX [Suspect]
     Route: 030
     Dates: start: 20090102
  2. AVONEX [Suspect]
     Indication: MULTIPLE SCLEROSIS
     Route: 030
     Dates: start: 20070603, end: 20071116

REACTIONS (4)
  - ARTHRALGIA [None]
  - FATIGUE [None]
  - GASTROOESOPHAGEAL REFLUX DISEASE [None]
  - MOBILITY DECREASED [None]
